FAERS Safety Report 10284172 (Version 3)
Quarter: 2020Q2

REPORT INFORMATION
  Report Type: Spontaneous
  Country: US (occurrence: US)
  Receive Date: 20140708
  Receipt Date: 20200527
  Transmission Date: 20200713
  Serious: No
  Sender: FDA-Public Use
  Company Number: US-PFIZER INC-2014185137

PATIENT
  Age: 62 Year
  Sex: Female
  Weight: 61.22 kg

DRUGS (6)
  1. LYRICA [Suspect]
     Active Substance: PREGABALIN
     Indication: COMPLEX REGIONAL PAIN SYNDROME
     Dosage: 50 MG, 3X/DAY
     Route: 048
     Dates: start: 201203
  2. NORVASC [Concomitant]
     Active Substance: AMLODIPINE BESYLATE
     Indication: BLOOD PRESSURE ABNORMAL
     Dosage: UNK
  3. MELOXICAM. [Concomitant]
     Active Substance: MELOXICAM
     Indication: ARTHRITIS
     Dosage: UNK
  4. CRESTOR [Concomitant]
     Active Substance: ROSUVASTATIN CALCIUM
     Dosage: UNK
  5. PLAVIX [Concomitant]
     Active Substance: CLOPIDOGREL BISULFATE
     Dosage: 75 MG, UNK
  6. LYRICA [Suspect]
     Active Substance: PREGABALIN
     Indication: MYOFASCIAL PAIN SYNDROME
     Dosage: 100 MG, 3X/DAY
     Route: 048

REACTIONS (5)
  - Burning sensation [Unknown]
  - Product use in unapproved indication [Unknown]
  - Drug withdrawal syndrome [Unknown]
  - Intentional product misuse [Unknown]
  - Off label use [Unknown]
